FAERS Safety Report 5251755-8 (Version None)
Quarter: 2007Q1

REPORT INFORMATION
  Report Type: 
  Country: None (occurrence: None)
  Receive Date: 20070228
  Receipt Date: 20070221
  Transmission Date: 20070707
  Serious: Yes (Hospitalization)
  Sender: FDA-Public Use
  Company Number: JP-PFIZER INC-2007014688

PATIENT
  Age: 81 Year
  Sex: Male

DRUGS (2)
  1. ZITHROMAC [Suspect]
     Indication: PYREXIA
     Route: 048
     Dates: start: 20070123, end: 20070125
  2. DALACIN S [Suspect]
     Indication: PYREXIA
     Route: 042
     Dates: start: 20070101, end: 20070101

REACTIONS (1)
  - STEVENS-JOHNSON SYNDROME [None]
